FAERS Safety Report 17031043 (Version 5)
Quarter: 2020Q3

REPORT INFORMATION
  Report Type: Report from Study
  Country: None (occurrence: NL)
  Receive Date: 20191114
  Receipt Date: 20200808
  Transmission Date: 20201102
  Serious: Yes (Hospitalization)
  Sender: FDA-Public Use
  Company Number: NL-ABBVIE-19K-114-2951844-00

PATIENT
  Age: 66 Year
  Sex: Female

DRUGS (2)
  1. DUODOPA [Suspect]
     Active Substance: CARBIDOPA\LEVODOPA
  2. DUODOPA [Suspect]
     Active Substance: CARBIDOPA\LEVODOPA
     Indication: PARKINSON^S DISEASE
     Dosage: MD 4ML; CD 3.7ML/H; ED 2.5ML. LL2 ON PUMP
     Route: 050
     Dates: start: 20110718

REACTIONS (25)
  - Stoma site haemorrhage [Not Recovered/Not Resolved]
  - Musculoskeletal stiffness [Unknown]
  - Initial insomnia [Unknown]
  - Fibroma [Recovered/Resolved]
  - Fatigue [Not Recovered/Not Resolved]
  - Dyskinesia [Unknown]
  - Embedded device [Recovered/Resolved]
  - Incorrect route of product administration [Not Recovered/Not Resolved]
  - Stoma site odour [Not Recovered/Not Resolved]
  - Embedded device [Not Recovered/Not Resolved]
  - Incorrect route of product administration [Recovered/Resolved]
  - Stoma site extravasation [Not Recovered/Not Resolved]
  - Abdominal pain upper [Not Recovered/Not Resolved]
  - Stoma site reaction [Not Recovered/Not Resolved]
  - On and off phenomenon [Unknown]
  - Abdominal abscess [Recovered/Resolved]
  - Device placement issue [Unknown]
  - Hyperkinesia [Unknown]
  - Constipation [Not Recovered/Not Resolved]
  - Stoma complication [Not Recovered/Not Resolved]
  - Stoma site erythema [Not Recovered/Not Resolved]
  - Stoma site pain [Recovered/Resolved]
  - Diarrhoea [Not Recovered/Not Resolved]
  - Stoma site inflammation [Recovered/Resolved]
  - Stoma site discharge [Not Recovered/Not Resolved]

NARRATIVE: CASE EVENT DATE: 20190923
